FAERS Safety Report 5356480-0 (Version None)
Quarter: 2007Q2

REPORT INFORMATION
  Report Type: 
  Country: None (occurrence: None)
  Receive Date: 20070530
  Receipt Date: 20070116
  Transmission Date: 20071010
  Serious: Yes (Hospitalization, Other)
  Sender: FDA-Public Use
  Company Number: US200609003718

PATIENT
  Age: 62 Year
  Sex: Male
  Weight: 79.4 kg

DRUGS (1)
  1. ZYPREXA [Suspect]
     Dosage: 5 MG, ORAL
     Route: 048
     Dates: start: 20030901, end: 20040301

REACTIONS (4)
  - BLOOD CHOLESTEROL ABNORMAL [None]
  - CATARACT [None]
  - DIABETES MELLITUS [None]
  - HYPERTENSION [None]
